FAERS Safety Report 5618220-7 (Version None)
Quarter: 2008Q1

REPORT INFORMATION
  Report Type: 
  Country: None (occurrence: None)
  Receive Date: 20080207
  Receipt Date: 20080129
  Transmission Date: 20080703
  Serious: Yes (Death)
  Sender: FDA-Public Use
  Company Number: BE-JNJFOC-20061105372

PATIENT
  Sex: Female
  Weight: 51 kg

DRUGS (4)
  1. TOPAMAX [Suspect]
     Indication: MIGRAINE
     Route: 048
  2. IMITREX [Concomitant]
     Indication: MIGRAINE
     Route: 065
  3. ZOMIG [Concomitant]
     Indication: MIGRAINE
     Route: 065
  4. NARAMIG [Concomitant]
     Indication: MIGRAINE

REACTIONS (1)
  - COMPLETED SUICIDE [None]
